FAERS Safety Report 5557206-8 (Version None)
Quarter: 2007Q4

REPORT INFORMATION
  Report Type: 
  Country: None (occurrence: None)
  Receive Date: 20071211
  Receipt Date: 20071211
  Transmission Date: 20080405
  Serious: Yes (Hospitalization)
  Sender: FDA-Public Use
  Company Number: None

PATIENT
  Sex: Female
  Weight: 110 kg

DRUGS (1)
  1. TAXOL [Suspect]
     Dosage: 271.5 MG

REACTIONS (8)
  - ACTIVITIES OF DAILY LIVING IMPAIRED [None]
  - BACK PAIN [None]
  - DEEP VEIN THROMBOSIS [None]
  - DIARRHOEA [None]
  - DYSPNOEA EXERTIONAL [None]
  - FAECAL INCONTINENCE [None]
  - INTERVERTEBRAL DISC DEGENERATION [None]
  - PULMONARY EMBOLISM [None]
